FAERS Safety Report 5093060-9 (Version None)
Quarter: 2006Q3

REPORT INFORMATION
  Report Type: 
  Country: None (occurrence: None)
  Receive Date: 20060828
  Receipt Date: 20060815
  Transmission Date: 20061208
  Serious: Yes (Other)
  Sender: FDA-Public Use
  Company Number: 2006099489

PATIENT
  Age: 63 Year
  Sex: Female

DRUGS (6)
  1. AZITHROMYCIN [Suspect]
     Indication: DRUG USE FOR UNKNOWN INDICATION
     Dosage: 500  MG (500 MG, 1 IN 1 D), ORAL
     Route: 048
     Dates: start: 20060811, end: 20060812
  2. TRANSAMIN (TRANEXAMIC ACID) [Concomitant]
  3. MUCOSERUM (AMBROXOL HYDROCHLORIDE) [Concomitant]
  4. NORVASC [Concomitant]
  5. SELBEX (TEPRENONE) [Concomitant]
  6. ALESION (EPINASTINE HYDROCHLORIDE) [Concomitant]

REACTIONS (4)
  - DIZZINESS [None]
  - LOSS OF CONSCIOUSNESS [None]
  - PALLOR [None]
  - ROAD TRAFFIC ACCIDENT [None]
